FAERS Safety Report 19115313 (Version 1)
Quarter: 2021Q2

REPORT INFORMATION
  Report Type: Spontaneous
  Country: US (occurrence: US)
  Receive Date: 20210409
  Receipt Date: 20210409
  Transmission Date: 20210717
  Serious: Yes (Other)
  Sender: FDA-Public Use
  Company Number: US-BAXTER-2021BAX006714

PATIENT
  Age: 42 Year
  Sex: Female

DRUGS (5)
  1. DOXIL [Suspect]
     Active Substance: DOXORUBICIN HYDROCHLORIDE
     Indication: BREAST CANCER
     Dosage: ONGOING
     Route: 065
     Dates: start: 201803, end: 201805
  2. MESNEX [Suspect]
     Active Substance: MESNA
     Dosage: TWO ADDITIONAL CYCLES
     Route: 065
     Dates: start: 201803, end: 201805
  3. MESNEX [Suspect]
     Active Substance: MESNA
     Indication: BREAST CANCER
     Dosage: 3 CYCLES
     Route: 065
     Dates: start: 201803, end: 201805
  4. IFEX [Suspect]
     Active Substance: IFOSFAMIDE
     Indication: BREAST CANCER
     Dosage: 3 CYCLES
     Route: 065
     Dates: start: 201803, end: 201805
  5. IFEX [Suspect]
     Active Substance: IFOSFAMIDE
     Dosage: TWO ADDITIONAL CYCLES
     Route: 065
     Dates: start: 201803, end: 201805

REACTIONS (1)
  - Febrile neutropenia [Unknown]
